FAERS Safety Report 13047080 (Version 1)
Quarter: 2016Q4

REPORT INFORMATION
  Report Type: Spontaneous
  Country: US (occurrence: US)
  Receive Date: 20161220
  Receipt Date: 20161220
  Transmission Date: 20170207
  Serious: Yes (Hospitalization, Other)
  Sender: FDA-Public Use
  Company Number: US-APOTEX-2016AP016032

PATIENT
  Age: 89 Year
  Sex: Male

DRUGS (4)
  1. AZITHROMYCIN ANHYDROUS. [Suspect]
     Active Substance: AZITHROMYCIN ANHYDROUS
     Indication: PRODUCT USED FOR UNKNOWN INDICATION
     Dosage: UNK
     Route: 065
  2. METRONIDAZOLE. [Suspect]
     Active Substance: METRONIDAZOLE
     Indication: PRODUCT USED FOR UNKNOWN INDICATION
     Dosage: UNK
     Route: 065
  3. PIPERACILIN/TAZOBACTAM [Suspect]
     Active Substance: PIPERACILLIN SODIUM\TAZOBACTAM SODIUM
     Indication: PRODUCT USED FOR UNKNOWN INDICATION
     Dosage: UNK
     Route: 065
  4. VANCOMYCIN [Suspect]
     Active Substance: VANCOMYCIN
     Indication: PRODUCT USED FOR UNKNOWN INDICATION
     Dosage: UNK
     Route: 065

REACTIONS (21)
  - Rash pustular [Unknown]
  - Wound treatment [Unknown]
  - Cardiac failure [Unknown]
  - Oedema peripheral [Unknown]
  - Haemodynamic test abnormal [Unknown]
  - Pancreatitis acute [Unknown]
  - Retroperitoneal fibrosis [Unknown]
  - Blister [Unknown]
  - Leukocytosis [Unknown]
  - Biliary tract disorder [Unknown]
  - Liver disorder [Unknown]
  - Cholelithiasis [Unknown]
  - Gastrointestinal inflammation [Unknown]
  - Hypersensitivity [Unknown]
  - Angioedema [Unknown]
  - Acute generalised exanthematous pustulosis [Unknown]
  - Neutrophilia [Unknown]
  - Rash morbilliform [Unknown]
  - Oedema [Unknown]
  - Abdominal pain [Unknown]
  - Blood bilirubin increased [Unknown]
